FAERS Safety Report 8526011-2 (Version None)
Quarter: 2012Q3

REPORT INFORMATION
  Report Type: 
  Country: None (occurrence: None)
  Receive Date: 20120720
  Receipt Date: 20120716
  Transmission Date: 20120928
  Serious: Yes (Other)
  Sender: FDA-Public Use
  Company Number: DE-ROCHE-798640

PATIENT
  Sex: Male
  Weight: 76 kg

DRUGS (8)
  1. PREDNISOLONE [Concomitant]
     Route: 042
  2. FENISTIL [Concomitant]
  3. OMEPRAZOLE [Concomitant]
     Indication: ULCER
     Dates: start: 20000101
  4. ACETAMINOPHEN [Concomitant]
  5. MABTHERA [Suspect]
     Indication: CHRONIC LYMPHOCYTIC LEUKAEMIA
     Dosage: LAST DOSE:22 AUG 2011, DOSE INTERRUPTED
     Route: 042
     Dates: start: 20110404, end: 20110822
  6. GRANISETRON HYDROCHLORIDE [Concomitant]
     Dosage: 1 AMP
  7. BENDAMUSTINE HYDROCHLORIDE [Suspect]
     Indication: CHRONIC LYMPHOCYTIC LEUKAEMIA
     Dosage: LAST DOSE:22 AUG 2011, DOSE INTERRUPTED
     Route: 042
  8. ZANTAC [Concomitant]

REACTIONS (1)
  - HEPATITIS TOXIC [None]
